FAERS Safety Report 7323717-8 (Version None)
Quarter: 2011Q1

REPORT INFORMATION
  Report Type: 
  Country: None (occurrence: None)
  Receive Date: 20110301
  Receipt Date: 20110222
  Transmission Date: 20110831
  Serious: Yes (Other)
  Sender: FDA-Public Use
  Company Number: US-B.I. PHARMACEUTICALS,INC./RIDGEFIELD-2011-BP-04925BP

PATIENT
  Sex: Female

DRUGS (3)
  1. CARVEDILOL [Concomitant]
     Indication: HYPERTENSION
     Route: 048
  2. SIMVASTATIN [Concomitant]
     Indication: BLOOD CHOLESTEROL INCREASED
     Dosage: 40 MG
     Route: 048
  3. AGGRENOX [Suspect]
     Route: 048
     Dates: start: 20100801, end: 20100814

REACTIONS (7)
  - HYPERSENSITIVITY [None]
  - AMNESIA [None]
  - DEMENTIA [None]
  - HEMIPARESIS [None]
  - CONVULSION [None]
  - CEREBROVASCULAR ACCIDENT [None]
  - LIP SWELLING [None]
